FAERS Safety Report 18249951 (Version 1)
Quarter: 2020Q3

REPORT INFORMATION
  Report Type: Report from Study
  Country: CL (occurrence: CL)
  Receive Date: 20200910
  Receipt Date: 20200910
  Transmission Date: 20201103
  Serious: Yes (Other)
  Sender: FDA-Public Use
  Company Number: NVSC2020CL102345

PATIENT
  Age: 73 Year
  Sex: Female

DRUGS (5)
  1. COSENTYX [Suspect]
     Active Substance: SECUKINUMAB
     Dosage: UNK (PROLONGED TO ONE MONTH AND A HALF)
     Route: 065
     Dates: start: 20200730
  2. COSENTYX [Suspect]
     Active Substance: SECUKINUMAB
     Indication: PSORIATIC ARTHROPATHY
     Dosage: 300 MG, UNKNOWN
     Route: 058
     Dates: start: 20200102
  3. COSENTYX [Suspect]
     Active Substance: SECUKINUMAB
     Dosage: 300 MG, UNKNOWN
     Route: 058
     Dates: start: 20200329
  4. COSENTYX [Suspect]
     Active Substance: SECUKINUMAB
     Dosage: 300 MG, UNKNOWN
     Route: 058
     Dates: start: 20200429
  5. METHOTREXATE. [Suspect]
     Active Substance: METHOTREXATE
     Indication: PRODUCT USED FOR UNKNOWN INDICATION
     Dosage: UNK
     Route: 065

REACTIONS (9)
  - Peripheral swelling [Recovering/Resolving]
  - Decreased immune responsiveness [Unknown]
  - Mouth swelling [Unknown]
  - Alopecia [Not Recovered/Not Resolved]
  - Stomatitis [Unknown]
  - Oral candidiasis [Recovered/Resolved]
  - Oral pain [Unknown]
  - Inappropriate schedule of product administration [Unknown]
  - Conjunctivitis [Recovering/Resolving]

NARRATIVE: CASE EVENT DATE: 2020
